FAERS Safety Report 19483548 (Version 2)
Quarter: 2023Q1

REPORT INFORMATION
  Report Type: Spontaneous
  Country: US (occurrence: US)
  Receive Date: 20210701
  Receipt Date: 20230126
  Transmission Date: 20230417
  Serious: Yes (Other)
  Sender: FDA-Public Use
  Company Number: US-PFIZER INC-2021782075

PATIENT
  Age: 80 Year
  Sex: Female

DRUGS (1)
  1. IBRANCE [Suspect]
     Active Substance: PALBOCICLIB
     Dosage: 100 MG, CYCLIC (DIRECTION TAKE 1 TABLET BY MOUTH DAILY ON DAYS 1-21 OF EACH 28 DAY CYCLE)
     Route: 048

REACTIONS (1)
  - Neutropenia [Unknown]
